FAERS Safety Report 17935737 (Version 1)
Quarter: 2020Q2

REPORT INFORMATION
  Report Type: Spontaneous
  Country: US (occurrence: US)
  Receive Date: 20200624
  Receipt Date: 20200624
  Transmission Date: 20200714
  Serious: Yes (Death, Life-Threatening, Hospitalization, Disabling, Other)
  Sender: FDA-Public Use
  Company Number: None

PATIENT
  Age: 86 Year
  Sex: Male
  Weight: 90.72 kg

DRUGS (1)
  1. HYDROXYCHLOROQUINE 200MG [Suspect]
     Active Substance: HYDROXYCHLOROQUINE
     Indication: COVID-19
     Dosage: ?          QUANTITY:1;?
     Dates: start: 20200409, end: 20200415

REACTIONS (10)
  - Chest discomfort [None]
  - Cardiac infection [None]
  - Pulse absent [None]
  - Nausea [None]
  - Fall [None]
  - Coronary artery occlusion [None]
  - SARS-CoV-2 test negative [None]
  - Cardiac disorder [None]
  - Loss of consciousness [None]
  - Dyspnoea [None]
